FAERS Safety Report 22385669 (Version 11)
Quarter: 2025Q1

REPORT INFORMATION
  Report Type: Spontaneous
  Country: US (occurrence: US)
  Receive Date: 20230530
  Receipt Date: 20250120
  Transmission Date: 20250409
  Serious: Yes (Death, Hospitalization)
  Sender: PFIZER
  Company Number: US-PFIZER INC-PV202300094414

PATIENT
  Age: 87 Year
  Sex: Male
  Weight: 88.5 kg

DRUGS (8)
  1. VYNDAMAX [Suspect]
     Active Substance: TAFAMIDIS
     Indication: Cardiac amyloidosis
     Dosage: 61 MG, DAILY
     Dates: start: 20130321, end: 20240326
  2. VYNDAMAX [Suspect]
     Active Substance: TAFAMIDIS
     Indication: Cardiomyopathy
     Dosage: TAKE 61 MG BY MOUTH IN THE MORNING.
     Route: 048
     Dates: start: 20240506
  3. VYNDAMAX [Suspect]
     Active Substance: TAFAMIDIS
     Indication: Acquired ATTR amyloidosis
  4. VYNDAMAX [Suspect]
     Active Substance: TAFAMIDIS
     Indication: Cardiac failure chronic
  5. ELIQUIS [Suspect]
     Active Substance: APIXABAN
     Indication: Atrial fibrillation
     Dosage: 2.5 MG, 1X/DAY
     Route: 048
     Dates: start: 20240109, end: 20240313
  6. ELIQUIS [Suspect]
     Active Substance: APIXABAN
     Indication: Cerebrovascular accident prophylaxis
     Dosage: 2.5 MG, 2X/DAY(TAKE 1 TABLET (2.5 MG) BY MOUTH IN THE MORNING AND AT BEDTIME)
     Route: 048
  7. ELIQUIS [Suspect]
     Active Substance: APIXABAN
     Dosage: TAKE 1 TAB EACH DAY. HOLD FOR 6 DAYS, CAN RESUME TAKING IF NO FURTHER BLEEDING OR WORSENING SWELLING
     Route: 048
  8. ELIQUIS [Suspect]
     Active Substance: APIXABAN
     Route: 048

REACTIONS (11)
  - Death [Fatal]
  - Arthralgia [Unknown]
  - Pain in extremity [Unknown]
  - Brain natriuretic peptide increased [Unknown]
  - Somnolence [Unknown]
  - Dyspnoea [Unknown]
  - Oedema peripheral [Unknown]
  - Fall [Unknown]
  - Head injury [Unknown]
  - Fatigue [Unknown]
  - Pleural effusion [Unknown]

NARRATIVE: CASE EVENT DATE: 20241101
